FAERS Safety Report 15163675 (Version 1)
Quarter: 2018Q3

REPORT INFORMATION
  Report Type: Report from Study
  Country: ES (occurrence: ES)
  Receive Date: 20180719
  Receipt Date: 20180719
  Transmission Date: 20181010
  Serious: Yes (Life-Threatening, Hospitalization, Other)
  Sender: FDA-Public Use
  Company Number: ES-TEVA-2018-ES-928691

PATIENT
  Age: 79 Year
  Sex: Female

DRUGS (6)
  1. CARVEDILOL. [Interacting]
     Active Substance: CARVEDILOL
     Dosage: 6.25 MILLIGRAM DAILY;
     Route: 048
     Dates: start: 201609, end: 20161208
  2. REPAGLINIDA [Concomitant]
     Active Substance: REPAGLINIDE
     Indication: TYPE 2 DIABETES MELLITUS
     Dosage: .5 MILLIGRAM DAILY;
     Route: 048
     Dates: start: 20140310, end: 20161208
  3. AMLODIPINE [Suspect]
     Active Substance: AMLODIPINE BESYLATE
     Dosage: 5 MILLIGRAM DAILY;
     Route: 048
     Dates: start: 201008, end: 20161208
  4. PAROXETINE. [Concomitant]
     Active Substance: PAROXETINE
     Dosage: 20 MILLIGRAM DAILY;
     Route: 048
     Dates: start: 201008, end: 20161208
  5. FUROSEMIDA [Concomitant]
     Active Substance: FUROSEMIDE
     Dosage: 40 MILLIGRAM DAILY;
     Route: 048
     Dates: start: 201207, end: 20161208
  6. AZARGA 10 MG/ ML + 5 MG/ ML COLIRIO EN SUSPENSION, 1 FRASCO DE 5 ML [Concomitant]
     Indication: GLAUCOMA
     Route: 047
     Dates: start: 20160509, end: 20161208

REACTIONS (2)
  - Drug interaction [Unknown]
  - Atrioventricular block [Recovered/Resolved with Sequelae]

NARRATIVE: CASE EVENT DATE: 20161208
